FAERS Safety Report 4296172-2 (Version None)
Quarter: 2004Q1

REPORT INFORMATION
  Report Type: 
  Country: None (occurrence: None)
  Receive Date: 20040217
  Receipt Date: 20030908
  Transmission Date: 20041129
  Serious: No
  Sender: FDA-Public Use
  Company Number: US-GLAXOSMITHKLINE-A0425062A

PATIENT
  Age: 46 Year
  Sex: Female
  Weight: 72.7 kg

DRUGS (3)
  1. LAMICTAL [Suspect]
     Dosage: 200MG PER DAY
     Route: 048
     Dates: start: 20030827
  2. LEXAPRO [Concomitant]
     Dosage: 10MG PER DAY
     Route: 048
     Dates: start: 20021119
  3. AMBIEN [Concomitant]
     Dosage: 5MG PER DAY
     Route: 048
     Dates: start: 20020806

REACTIONS (3)
  - ABNORMAL DREAMS [None]
  - DEPRESSION [None]
  - RASH [None]
